FAERS Safety Report 7470975-5 (Version None)
Quarter: 2011Q2

REPORT INFORMATION
  Report Type: 
  Country: None (occurrence: None)
  Receive Date: 20110506
  Receipt Date: 20110506
  Transmission Date: 20111010
  Serious: No
  Sender: FDA-Public Use
  Company Number: None

PATIENT
  Age: 59 Year
  Sex: Female
  Weight: 65.7716 kg

DRUGS (1)
  1. BUTORPHANOL TARTRATE [Suspect]
     Indication: MIGRAINE
     Dosage: 1 SPRAY IN ONE NOSTRIL 3-4 HRS AS NEEDED ENDOSINUSIAL
     Route: 006
     Dates: start: 20110101, end: 20110502

REACTIONS (3)
  - ABDOMINAL DISCOMFORT [None]
  - VOMITING [None]
  - PRODUCT SUBSTITUTION ISSUE [None]
